FAERS Safety Report 12673236 (Version 2)
Quarter: 2016Q4

REPORT INFORMATION
  Report Type: Spontaneous
  Country: GB (occurrence: GB)
  Receive Date: 20160822
  Receipt Date: 20161103
  Transmission Date: 20170207
  Serious: Yes (Other)
  Sender: FDA-Public Use
  Company Number: GB-TAKEDA-2016TUS014656

PATIENT
  Age: 24 Year
  Sex: Female

DRUGS (1)
  1. ENTYVIO [Suspect]
     Active Substance: VEDOLIZUMAB
     Indication: PROCTITIS
     Dosage: 300 MG, UNK
     Route: 065

REACTIONS (3)
  - Swelling face [Recovered/Resolved]
  - Off label use [Unknown]
  - Swollen tongue [Recovered/Resolved]
